FAERS Safety Report 13462651 (Version 1)
Quarter: 2017Q2

REPORT INFORMATION
  Report Type: Spontaneous
  Country: US (occurrence: US)
  Receive Date: 20170420
  Receipt Date: 20170420
  Transmission Date: 20170830
  Serious: Yes (Other)
  Sender: FDA-Public Use
  Company Number: US-BAYER-2017-075636

PATIENT
  Age: 23 Year
  Sex: Male

DRUGS (1)
  1. CIPRO [Suspect]
     Active Substance: CIPROFLOXACIN HYDROCHLORIDE
     Indication: URINARY TRACT INFECTION
     Dosage: 500 MG, UNK
     Route: 048

REACTIONS (6)
  - Tinnitus [Unknown]
  - Myalgia [Unknown]
  - Tendonitis [Unknown]
  - Weight decreased [Unknown]
  - Depression [Unknown]
  - Rash [Unknown]
